FAERS Safety Report 16819827 (Version 1)
Quarter: 2019Q3

REPORT INFORMATION
  Report Type: Report from Study
  Country: GB (occurrence: GB)
  Receive Date: 20190917
  Receipt Date: 20190917
  Transmission Date: 20191005
  Serious: Yes (Hospitalization, Other)
  Sender: FDA-Public Use
  Company Number: PHHY2019GB192844

PATIENT
  Age: 54 Year
  Sex: Female

DRUGS (1)
  1. HYRIMOZ [Suspect]
     Active Substance: ADALIMUMAB-ADAZ
     Indication: PSORIATIC ARTHROPATHY
     Dosage: UNK UNK, Q2W, PREFILLED PEN
     Route: 065
     Dates: start: 20190813

REACTIONS (19)
  - Sinusitis [Unknown]
  - Nausea [Unknown]
  - Nasal ulcer [Unknown]
  - Arthritis [Unknown]
  - Dermatitis [Unknown]
  - Hypoaesthesia oral [Unknown]
  - Parosmia [Unknown]
  - Accident [Unknown]
  - Arthralgia [Unknown]
  - Mouth swelling [Unknown]
  - Epistaxis [Unknown]
  - Lower respiratory tract infection [Unknown]
  - Influenza like illness [Unknown]
  - Hypertension [Unknown]
  - Inflammatory bowel disease [Unknown]
  - Asthma [Unknown]
  - Headache [Unknown]
  - Gingival swelling [Unknown]
  - Rhinalgia [Unknown]

NARRATIVE: CASE EVENT DATE: 20190813
